FAERS Safety Report 8219046-0 (Version None)
Quarter: 2012Q1

REPORT INFORMATION
  Report Type: 
  Country: None (occurrence: None)
  Receive Date: 20120319
  Receipt Date: 20120314
  Transmission Date: 20120608
  Serious: Yes (Disabling, Other)
  Sender: FDA-Public Use
  Company Number: US-PFIZER INC-2012067696

PATIENT
  Sex: Male
  Weight: 138.32 kg

DRUGS (3)
  1. TRAZODONE [Concomitant]
     Indication: INSOMNIA
     Dosage: UNK
  2. LYRICA [Suspect]
     Indication: NEUROPATHY PERIPHERAL
     Dosage: 150 MG, 3X/DAY
     Route: 048
  3. CELEXA [Concomitant]
     Indication: DEPRESSION
     Dosage: UNK

REACTIONS (4)
  - OSTEOARTHRITIS [None]
  - INTERVERTEBRAL DISC DEGENERATION [None]
  - SPINAL OSTEOARTHRITIS [None]
  - MEMORY IMPAIRMENT [None]
